FAERS Safety Report 6030306-4 (Version None)
Quarter: 2009Q1

REPORT INFORMATION
  Report Type: 
  Country: None (occurrence: None)
  Receive Date: 20090107
  Receipt Date: 20081230
  Transmission Date: 20090719
  Serious: Yes (Death, Other)
  Sender: FDA-Public Use
  Company Number: AR-PFIZER INC-2008156004

PATIENT
  Age: 49 Year
  Sex: Female

DRUGS (3)
  1. METHYLPREDNISOLONE AND METHYLPREDNISOLONE ACETATE AND METHYLPREDNISOLO [Suspect]
     Dosage: 4 MG, 1X/DAY
  2. MYCOPHENOLATE MOFETIL [Suspect]
     Dosage: 2 G, 1X/DAY
  3. TACROLIMUS [Suspect]
     Dosage: 2 MG, 1X/DAY

REACTIONS (2)
  - DEATH [None]
  - HISTOPLASMOSIS DISSEMINATED [None]
